FAERS Safety Report 13948690 (Version 2)
Quarter: 2017Q3

REPORT INFORMATION
  Report Type: Spontaneous
  Country: SV (occurrence: SV)
  Receive Date: 20170908
  Receipt Date: 20170918
  Transmission Date: 20171128
  Serious: Yes (Other)
  Sender: FDA-Public Use
  Company Number: SV-SA-2017SA162997

PATIENT
  Age: 25 Year
  Sex: Male

DRUGS (1)
  1. FABRAZYME [Suspect]
     Active Substance: AGALSIDASE BETA
     Indication: FABRY^S DISEASE
     Dosage: DOSE:  2 VIALS OF 35 MG
     Route: 041
     Dates: start: 2014

REACTIONS (2)
  - Demyelinating polyneuropathy [Recovering/Resolving]
  - Hyporeflexia [Recovered/Resolved]

NARRATIVE: CASE EVENT DATE: 20170823
